FAERS Safety Report 9614027 (Version 3)
Quarter: 2013Q4

REPORT INFORMATION
  Report Type: Spontaneous
  Country: US (occurrence: US)
  Receive Date: 20131011
  Receipt Date: 20131118
  Transmission Date: 20140711
  Serious: Yes (Hospitalization)
  Sender: FDA-Public Use
  Company Number: US-009507513-1310USA004032

PATIENT
  Age: 71 Year
  Sex: Female

DRUGS (12)
  1. PROVENTIL [Suspect]
     Dosage: 90 MICROGRAM, UNK
     Route: 055
  2. PROVENTIL [Suspect]
     Dosage: AS NEEDED
     Route: 055
     Dates: start: 20130930
  3. GABAPENTIN [Concomitant]
     Dosage: UNK
  4. HYDROCODONE [Concomitant]
     Dosage: UNK
  5. DICLOFENAC SODIUM [Concomitant]
     Dosage: UNK
  6. DIOVAN [Concomitant]
     Dosage: UNK
  7. METFORMIN [Concomitant]
     Dosage: UNK
  8. LEVOTHYROXINE SODIUM [Concomitant]
     Dosage: UNK
     Route: 048
  9. BUPROPION HYDROCHLORIDE [Concomitant]
     Dosage: UNK
  10. FUROSEMIDE [Concomitant]
     Dosage: UNK
     Route: 048
  11. LANTUS [Concomitant]
     Dosage: UNK
  12. CLOPIDOGREL [Concomitant]
     Dosage: UNK

REACTIONS (9)
  - Hallucination [Recovering/Resolving]
  - Infection [Recovering/Resolving]
  - Pyrexia [Recovering/Resolving]
  - Disorientation [Recovering/Resolving]
  - Asthenia [Unknown]
  - Malaise [Unknown]
  - Off label use [Unknown]
  - Product quality issue [Unknown]
  - Inappropriate schedule of drug administration [Unknown]
